FAERS Safety Report 26051460 (Version 1)
Quarter: 2025Q4

REPORT INFORMATION
  Report Type: Spontaneous
  Country: RU (occurrence: RU)
  Receive Date: 20251117
  Receipt Date: 20251117
  Transmission Date: 20260117
  Serious: Yes (Life-Threatening, Other)
  Sender: JOHNSON AND JOHNSON
  Company Number: RU-BAYER-2025A151186

PATIENT
  Age: 77 Year
  Sex: Male
  Weight: 110 kg

DRUGS (4)
  1. XARELTO [Suspect]
     Active Substance: RIVAROXABAN
     Indication: Myocardial ischaemia
     Dosage: 20 MG, QD
     Route: 048
     Dates: start: 202001
  2. SPIRONOLACTONE [Concomitant]
     Active Substance: SPIRONOLACTONE
     Indication: Myocardial ischaemia
     Dosage: 50 MG, TID
     Route: 048
     Dates: start: 202301
  3. FUROSEMIDE [Concomitant]
     Active Substance: FUROSEMIDE
     Indication: Product used for unknown indication
     Dosage: 40 MG, QD
     Dates: start: 202408
  4. DAPAGLIFLOZIN [Concomitant]
     Active Substance: DAPAGLIFLOZIN
     Indication: Myocardial ischaemia
     Dosage: 10 MG, QD
     Route: 048
     Dates: start: 202001

REACTIONS (1)
  - Cardiac failure [Not Recovered/Not Resolved]

NARRATIVE: CASE EVENT DATE: 20240801
